FAERS Safety Report 10966124 (Version 1)
Quarter: 2015Q1

REPORT INFORMATION
  Report Type: Spontaneous
  Country: US (occurrence: US)
  Receive Date: 20150330
  Receipt Date: 20150330
  Transmission Date: 20150721
  Serious: No
  Sender: FDA-Public Use
  Company Number: US-MYLANLABS-2014M1013679

PATIENT
  Sex: Female

DRUGS (3)
  1. FENTANYL TRANSDERMAL SYSTEM [Suspect]
     Active Substance: FENTANYL
     Indication: BACK PAIN
     Dosage: 100 ?G, QH, CHANGED Q72H
     Route: 062
     Dates: start: 2008
  2. ESTRACE [Concomitant]
     Active Substance: ESTRADIOL
     Dosage: UNK
  3. METOPROLOL [Concomitant]
     Active Substance: METOPROLOL
     Dosage: 10 MG, QD

REACTIONS (2)
  - Hyperhidrosis [Not Recovered/Not Resolved]
  - Skin reaction [Recovered/Resolved]

NARRATIVE: CASE EVENT DATE: 2013
